FAERS Safety Report 7721903-6 (Version None)
Quarter: 2011Q3

REPORT INFORMATION
  Report Type: 
  Country: None (occurrence: None)
  Receive Date: 20110831
  Receipt Date: 20110816
  Transmission Date: 20111222
  Serious: No
  Sender: FDA-Public Use
  Company Number: US-B.I. PHARMACEUTICALS,INC./RIDGEFIELD-2011-BP-20138BP

PATIENT
  Age: 55 Year
  Sex: Female

DRUGS (6)
  1. VICODIN [Suspect]
     Indication: BACK DISORDER
  2. ALLEGRA [Suspect]
     Indication: SEASONAL ALLERGY
     Dosage: 180 MG
     Route: 048
     Dates: start: 20110801, end: 20110801
  3. SINGULAIR [Suspect]
     Indication: ASTHMA
  4. PREDNISONE [Suspect]
     Indication: ASTHMA
  5. SPIRIVA [Suspect]
     Indication: ASTHMA
  6. ADVAIR DISKUS 100/50 [Suspect]
     Indication: ASTHMA

REACTIONS (1)
  - NAUSEA [None]
